FAERS Safety Report 5082604-9 (Version None)
Quarter: 2006Q3

REPORT INFORMATION
  Report Type: 
  Country: None (occurrence: None)
  Receive Date: 20060817
  Receipt Date: 20060808
  Transmission Date: 20061208
  Serious: Yes (Other)
  Sender: FDA-Public Use
  Company Number: DE-JNJFOC-20060801949

PATIENT
  Sex: Female
  Weight: 69 kg

DRUGS (4)
  1. REMICADE [Suspect]
     Route: 042
  2. REMICADE [Suspect]
     Dosage: 12TH INFUSION
     Route: 042
  3. REMICADE [Suspect]
     Indication: ANKYLOSING SPONDYLITIS
     Dosage: WEEK 2,6,8 THEN EVERY 8 WEEKS
     Route: 042
  4. SOLUDECORTIN [Concomitant]
     Route: 065

REACTIONS (4)
  - CONJUNCTIVITIS [None]
  - EYELID OEDEMA [None]
  - HEADACHE [None]
  - HYPERSENSITIVITY [None]
